FAERS Safety Report 9342269 (Version 2)
Quarter: 2013Q2

REPORT INFORMATION
  Report Type: Spontaneous
  Country: ES (occurrence: None)
  Receive Date: 20130607
  Receipt Date: 20130620
  Transmission Date: 20140414
  Serious: Yes (Hospitalization, Other)
  Sender: FDA-Public Use
  Company Number: AUR-APL-2013-04498

PATIENT
  Age: 76 Year
  Sex: Male
  Weight: 72.5 kg

DRUGS (1)
  1. METFORMIN [Suspect]
     Indication: TYPE 2 DIABETES MELLITUS
     Dosage: 250 MG, (250 MG, 1 IN 1 D) UNK

REACTIONS (1)
  - Urinary tract infection [None]
